FAERS Safety Report 5718943-5 (Version None)
Quarter: 2008Q2

REPORT INFORMATION
  Report Type: 
  Country: None (occurrence: None)
  Receive Date: 20080425
  Receipt Date: 20080415
  Transmission Date: 20081010
  Serious: Yes (Disabling, Other)
  Sender: FDA-Public Use
  Company Number: US-MERCK-0705USA01545

PATIENT
  Age: 50 Year
  Sex: Female

DRUGS (1)
  1. FOSAMAX [Suspect]
     Indication: OSTEOPENIA
     Route: 048
     Dates: start: 19970701, end: 19990101

REACTIONS (15)
  - ABSCESS [None]
  - ADVERSE EVENT [None]
  - DEAFNESS [None]
  - DENTAL CARIES [None]
  - EDENTULOUS [None]
  - GINGIVAL DISORDER [None]
  - IMPAIRED HEALING [None]
  - INFECTION [None]
  - ORAL INFECTION [None]
  - PAIN [None]
  - PERIODONTAL DISEASE [None]
  - RESORPTION BONE INCREASED [None]
  - SWELLING [None]
  - TOOTH LOSS [None]
  - WRIST FRACTURE [None]
